FAERS Safety Report 8404128-0 (Version None)
Quarter: 2012Q2

REPORT INFORMATION
  Report Type: 
  Country: None (occurrence: None)
  Receive Date: 20120601
  Receipt Date: 20120522
  Transmission Date: 20120825
  Serious: No
  Sender: FDA-Public Use
  Company Number: US-B.I. PHARMACEUTICALS,INC./RIDGEFIELD-2012-BP-11382BP

PATIENT
  Age: 84 Year
  Sex: Male

DRUGS (6)
  1. METOPROLOL TARTRATE [Concomitant]
     Indication: HYPERTENSION
  2. ASPIRIN [Concomitant]
  3. CHLOR-CON [Concomitant]
  4. FUROSEMIDE [Concomitant]
     Indication: FLUID RETENTION
  5. PRADAXA [Suspect]
     Dosage: 300 MG
     Route: 048
     Dates: start: 20110201, end: 20110501
  6. PRADAXA [Suspect]
     Dosage: 300 MG
     Route: 048
     Dates: start: 20120201, end: 20120518

REACTIONS (2)
  - CONTUSION [None]
  - INFLUENZA LIKE ILLNESS [None]
